FAERS Safety Report 4638436-6 (Version None)
Quarter: 2005Q2

REPORT INFORMATION
  Report Type: 
  Country: None (occurrence: None)
  Receive Date: 20050418
  Receipt Date: 20050411
  Transmission Date: 20051028
  Serious: Yes (Hospitalization)
  Sender: FDA-Public Use
  Company Number: DE-MERCK-0504DEU00074

PATIENT
  Age: 53 Year
  Sex: Male
  Weight: 186 kg

DRUGS (12)
  1. PRIMAXIN [Suspect]
     Indication: PYREXIA
     Route: 051
     Dates: start: 20050212, end: 20050219
  2. PRIMAXIN [Suspect]
     Indication: NEUTROPENIA
     Route: 051
     Dates: start: 20050212, end: 20050219
  3. CYCLOSPORINE [Suspect]
     Indication: PROPHYLAXIS AGAINST TRANSPLANT REJECTION
     Route: 065
     Dates: start: 20050201
  4. CYCLOSPORINE [Suspect]
     Route: 065
     Dates: start: 20050219
  5. ACYCLOVIR [Concomitant]
     Route: 065
     Dates: start: 20050204, end: 20050221
  6. DIPYRONE [Concomitant]
     Indication: ANTIPYRESIS
     Route: 065
     Dates: start: 20050129, end: 20050221
  7. HEPARIN [Concomitant]
     Indication: THROMBOSIS PROPHYLAXIS
     Route: 065
     Dates: start: 20050129, end: 20050221
  8. HEPARIN [Concomitant]
     Indication: PROPHYLAXIS
     Route: 065
     Dates: start: 20050129, end: 20050221
  9. PANTOPRAZOLE SODIUM [Concomitant]
     Route: 065
     Dates: start: 20050129
  10. DIMENHYDRINATE [Concomitant]
     Indication: NAUSEA
     Route: 065
     Dates: start: 20050204, end: 20050216
  11. LINEZOLID [Concomitant]
     Indication: INFECTION
     Route: 065
     Dates: start: 20050213, end: 20050221
  12. CASPOFUNGIN ACETATE [Concomitant]
     Indication: LUNG INFILTRATION
     Route: 051
     Dates: start: 20050202, end: 20050221

REACTIONS (3)
  - DRUG INTERACTION [None]
  - GRAFT VERSUS HOST DISEASE [None]
  - IMMUNOSUPPRESSANT DRUG LEVEL DECREASED [None]
